FAERS Safety Report 8493425-9 (Version None)
Quarter: 2012Q3

REPORT INFORMATION
  Report Type: 
  Country: None (occurrence: None)
  Receive Date: 20120706
  Receipt Date: 20120627
  Transmission Date: 20120928
  Serious: Yes (Other)
  Sender: FDA-Public Use
  Company Number: US-ASTRAZENECA-2012SE33021

PATIENT
  Age: 65 Year
  Sex: Female

DRUGS (28)
  1. ZOMIG [Suspect]
     Route: 048
  2. DURAFLEX [Concomitant]
     Dosage: 375MG-150MG-125MG THREE TIMES A DAY
  3. VITAMIN E [Concomitant]
     Dosage: 400 UNIT 2-3 TIMES A DAY
  4. ADVAIR DISKUS 100/50 [Concomitant]
     Dosage: 250MCG-50MCG/DOSE ONE PUFF TWICE DAILY
     Route: 055
  5. BUPROPION HCL [Concomitant]
     Route: 048
  6. FLONASE [Concomitant]
     Dosage: 1 SPRAY BY INTRANASAL TWICE A DAY IN EACH NOSTRIL
     Route: 045
  7. OXYCONTIN [Concomitant]
     Route: 048
  8. REMERON [Concomitant]
  9. ASPIRIN [Concomitant]
     Route: 048
  10. CITRACAL + D [Concomitant]
     Dosage: 315MG-200 UNIT 3 TIMES A DAY
  11. FISH OIL [Concomitant]
     Dosage: 300 MG- 1000MG CAP DELAYED RELEASE
  12. MIRALAX [Concomitant]
     Route: 048
  13. PHENERGAN HCL [Concomitant]
  14. FIORICET [Concomitant]
     Dosage: 50 MG-325MG-40MG ONE TABLET EVERY EIGHT HOURS AS NEEDED
     Route: 048
  15. SINGULAIR [Concomitant]
     Route: 048
  16. VENTOLIN HFA [Concomitant]
     Dosage: 90 UG 2 PUFFS EVERY 4-6 HOURS AS NEEDED
     Route: 055
  17. VITAMIN D [Concomitant]
     Route: 048
  18. CLIMARA [Concomitant]
     Dosage: 0.0375MG/24HR ONE PATCH EVERY WEEK CYCLICALLY 3 WEEKS ON AND 1 WEEK OFF
     Route: 062
  19. SYNTHROID [Concomitant]
     Route: 048
  20. XANAX [Concomitant]
     Dosage: 1 MG XANAX XR TWICE A DAY
     Route: 048
  21. CARDIZEM CD [Concomitant]
     Route: 048
  22. PROAIR HFA [Concomitant]
     Dosage: 2 PUFFS EVERY 4-6 HOURS AS NEEDED
     Route: 055
  23. ZOMIG [Suspect]
     Dosage: IF HEADACHE RETURNS THE DOSE MAY BE REPEATED AFTER TWO HOURS, NOT TO EXCEED 10 MG WITHIN 24 HOURS
     Route: 048
  24. ASTELIN [Concomitant]
     Dosage: 2 SPRAY BY INTRANASAL TWICE DAILY IN EACH NOSTRIL
     Route: 045
  25. CARDIZEM CD [Concomitant]
     Route: 048
  26. FLEXERIL [Concomitant]
     Route: 048
  27. TASIGNA [Concomitant]
     Route: 048
  28. XANAX [Concomitant]
     Dosage: 0.5 MG EVERY 1-8 HOURS AS NEEDED
     Route: 048

REACTIONS (15)
  - ASTHMA [None]
  - FIBROMYALGIA [None]
  - LEUKAEMIA [None]
  - BACK PAIN [None]
  - TENSION HEADACHE [None]
  - MYALGIA [None]
  - ARRHYTHMIA [None]
  - MIGRAINE [None]
  - SPINAL CORD DISORDER [None]
  - THYROID DISORDER [None]
  - BRAIN INJURY [None]
  - DEAFNESS [None]
  - FATIGUE [None]
  - NEPHROLITHIASIS [None]
  - OSTEOPOROSIS [None]
